FAERS Safety Report 8457036-3 (Version None)
Quarter: 2012Q2

REPORT INFORMATION
  Report Type: 
  Country: None (occurrence: None)
  Receive Date: 20120621
  Receipt Date: 20120618
  Transmission Date: 20120825
  Serious: Yes (Other)
  Sender: FDA-Public Use
  Company Number: US-PFIZER INC-2012146480

PATIENT
  Sex: Male
  Weight: 79.365 kg

DRUGS (4)
  1. KLONOPIN [Concomitant]
     Indication: ANXIETY
     Dosage: 0.5 MG, DAILY
  2. DEPO-TESTOSTERONE [Suspect]
     Indication: BLOOD TESTOSTERONE DECREASED
     Dosage: 1 ML, CYCLIC, EVERY TWO WEEKS
     Dates: start: 20120401
  3. LEVOTHYROXINE [Concomitant]
     Indication: THYROID DISORDER
     Dosage: UNK
  4. CALCIUM [Concomitant]
     Dosage: UNK

REACTIONS (2)
  - OEDEMA PERIPHERAL [None]
  - DYSPNOEA [None]
